FAERS Safety Report 17569033 (Version 1)
Quarter: 2020Q1

REPORT INFORMATION
  Report Type: Spontaneous
  Country: US (occurrence: US)
  Receive Date: 20200316
  Receipt Date: 20200316
  Transmission Date: 20200409
  Serious: No
  Sender: FDA-Public Use
  Company Number: None

PATIENT
  Age: 56 Year
  Sex: 0

DRUGS (1)
  1. TENOFOVIR DF 300MG TAB (X30) [Suspect]
     Active Substance: TENOFOVIR DISOPROXIL FUMARATE
     Route: 048
     Dates: start: 2018

REACTIONS (3)
  - Off label use [None]
  - Drug interaction [None]
  - Product use issue [None]

NARRATIVE: CASE EVENT DATE: 20180608
